FAERS Safety Report 15383060 (Version 1)
Quarter: 2018Q3

REPORT INFORMATION
  Report Type: Spontaneous
  Country: US (occurrence: US)
  Receive Date: 20180913
  Receipt Date: 20180913
  Transmission Date: 20181010
  Serious: No
  Sender: FDA-Public Use
  Company Number: US-ASTELLAS-2017US039888

PATIENT
  Sex: Male

DRUGS (1)
  1. XTANDI [Suspect]
     Active Substance: ENZALUTAMIDE
     Indication: PROSTATE CANCER
     Route: 048
     Dates: start: 20170828

REACTIONS (6)
  - Hypoaesthesia [Unknown]
  - Decreased appetite [Unknown]
  - Pain in extremity [Unknown]
  - Diarrhoea [Unknown]
  - Weight decreased [Unknown]
  - Peripheral swelling [Unknown]
